FAERS Safety Report 21209824 (Version 6)
Quarter: 2024Q4

REPORT INFORMATION
  Report Type: Report from Study
  Country: US (occurrence: US)
  Receive Date: 20220813
  Receipt Date: 20241213
  Transmission Date: 20250115
  Serious: Yes (Other)
  Sender: TAKEDA
  Company Number: US-TAKEDA-2022TUS055672

PATIENT
  Age: 22 Year
  Sex: Male

DRUGS (3)
  1. ADVATE [Suspect]
     Active Substance: ANTIHEMOPHILIC FACTOR, HUMAN RECOMBINANT
     Indication: Haemorrhage
     Dosage: 2000 INTERNATIONAL UNIT
  2. ADVATE [Suspect]
     Active Substance: ANTIHEMOPHILIC FACTOR, HUMAN RECOMBINANT
     Dosage: 4000 INTERNATIONAL UNIT
  3. ADVATE [Suspect]
     Active Substance: ANTIHEMOPHILIC FACTOR, HUMAN RECOMBINANT
     Dosage: 4000 INTERNATIONAL UNIT

REACTIONS (8)
  - Haemarthrosis [Unknown]
  - Mouth haemorrhage [Unknown]
  - Haemorrhage [Unknown]
  - Gait disturbance [Not Recovered/Not Resolved]
  - Road traffic accident [Unknown]
  - Expired product administered [Unknown]
  - Orthosis user [Unknown]
  - Limb injury [Unknown]

NARRATIVE: CASE EVENT DATE: 20220701
